FAERS Safety Report 21859992 (Version 1)
Quarter: 2023Q1

REPORT INFORMATION
  Report Type: Spontaneous
  Country: GB (occurrence: GB)
  Receive Date: 20230113
  Receipt Date: 20230113
  Transmission Date: 20230417
  Serious: Yes (Other)
  Sender: FDA-Public Use
  Company Number: GB-FRESENIUS KABI-FK201907421

PATIENT
  Age: 72 Year
  Sex: Female

DRUGS (25)
  1. DEXTROSE [Suspect]
     Active Substance: DEXTROSE
     Indication: Parenteral nutrition
     Dosage: UNKNOWN
     Route: 050
  2. SODIUM CHLORIDE [Suspect]
     Active Substance: SODIUM CHLORIDE
     Indication: Parenteral nutrition
     Dosage: UNKNOWN
     Route: 050
  3. WATER FOR INJECTION [Suspect]
     Active Substance: WATER
     Indication: Parenteral nutrition
     Dosage: UNKNOWN
     Route: 050
  4. ELECTROLYTES NOS\MINERALS\SORBITOL [Suspect]
     Active Substance: ELECTROLYTES NOS\MINERALS\SORBITOL
     Indication: Parenteral nutrition
     Dosage: UNKNOWN
     Route: 050
  5. ELECTROLYTES NOS\MINERALS\SORBITOL [Suspect]
     Active Substance: ELECTROLYTES NOS\MINERALS\SORBITOL
     Dosage: UNK
     Route: 050
  6. CYSTEINE [Suspect]
     Active Substance: CYSTEINE
     Indication: Parenteral nutrition
     Dosage: UNKNOWN
     Route: 050
  7. THREONINE [Suspect]
     Active Substance: THREONINE
     Indication: Parenteral nutrition
     Dosage: UNKNOWN
     Route: 050
  8. LYSINE [Suspect]
     Active Substance: LYSINE
     Indication: Parenteral nutrition
     Dosage: UNKNOWN
     Route: 050
  9. PHENYLALANINE [Suspect]
     Active Substance: PHENYLALANINE
     Indication: Parenteral nutrition
     Dosage: UNKNOWN
     Route: 050
  10. SERINE [Suspect]
     Active Substance: SERINE
     Indication: Parenteral nutrition
     Dosage: UNKNOWN
     Route: 050
  11. VALINE [Suspect]
     Active Substance: VALINE
     Indication: Parenteral nutrition
     Dosage: UNKNOWN
     Route: 050
  12. TRYPTOPHAN [Suspect]
     Active Substance: TRYPTOPHAN
     Indication: Parenteral nutrition
     Dosage: UNKNOWN
     Route: 050
  13. ALANINE [Suspect]
     Active Substance: ALANINE
     Indication: Parenteral nutrition
     Dosage: UNKNOWN
     Route: 050
  14. LEUCINE [Suspect]
     Active Substance: LEUCINE
     Indication: Parenteral nutrition
     Dosage: UNKNOWN
     Route: 050
  15. ARGININE [Suspect]
     Active Substance: ARGININE
     Indication: Parenteral nutrition
     Dosage: UNKNOWN
     Route: 050
  16. METHIONINE [Suspect]
     Active Substance: METHIONINE
     Indication: Parenteral nutrition
     Dosage: UNKNOWN
     Route: 050
  17. HISTIDINE [Suspect]
     Active Substance: HISTIDINE
     Indication: Parenteral nutrition
     Dosage: UNKNOWN
     Route: 050
  18. ISOLEUCINE [Suspect]
     Active Substance: ISOLEUCINE
     Indication: Parenteral nutrition
     Dosage: UNKNOWN
     Route: 050
  19. PROLINE [Suspect]
     Active Substance: PROLINE
     Indication: Parenteral nutrition
     Dosage: UNKNOWN
     Route: 050
  20. GLYCINE [Suspect]
     Active Substance: GLYCINE
     Indication: Parenteral nutrition
     Dosage: UNKNOWN
     Route: 050
  21. MAGNESIUM SULFATE [Suspect]
     Active Substance: MAGNESIUM SULFATE
     Indication: Parenteral nutrition
     Dosage: UNKNOWN
     Route: 050
  22. POTASSIUM CHLORIDE [Suspect]
     Active Substance: POTASSIUM CHLORIDE
     Indication: Parenteral nutrition
     Dosage: UNKNOWN
     Route: 050
  23. SODIUM GLYCEROPHOSPHATE [Suspect]
     Active Substance: SODIUM GLYCEROPHOSPHATE
     Indication: Parenteral nutrition
     Dosage: UNKNOWN
     Route: 050
  24. VITAMINS [Suspect]
     Active Substance: VITAMINS
     Indication: Parenteral nutrition
     Dosage: UNKNOWN
     Route: 050
  25. VITAMINS [Suspect]
     Active Substance: VITAMINS
     Dosage: UNK
     Route: 050

REACTIONS (1)
  - Infection [Unknown]

NARRATIVE: CASE EVENT DATE: 20190630
